FAERS Safety Report 14741897 (Version 1)
Quarter: 2018Q2

REPORT INFORMATION
  Report Type: Spontaneous
  Country: US (occurrence: US)
  Receive Date: 20180404
  Receipt Date: 20180404
  Transmission Date: 20180711
  Serious: Yes (Hospitalization)
  Sender: FDA-Public Use
  Company Number: None

PATIENT
  Age: 61 Year
  Sex: Female
  Weight: 77.2 kg

DRUGS (15)
  1. COLACE [Concomitant]
     Active Substance: DOCUSATE SODIUM
  2. FLONASE [Concomitant]
     Active Substance: FLUTICASONE PROPIONATE
  3. CREON [Concomitant]
     Active Substance: PANCRELIPASE AMYLASE\PANCRELIPASE LIPASE\PANCRELIPASE PROTEASE
  4. 5-FU [Suspect]
     Active Substance: FLUOROURACIL
     Indication: PANCREATIC CARCINOMA
     Dosage: ?          OTHER FREQUENCY:5DAY/WEEK;?
     Route: 042
     Dates: start: 20171009, end: 20171115
  5. ZOFRAN [Concomitant]
     Active Substance: ONDANSETRON HYDROCHLORIDE
  6. CHEMORADIATION [Suspect]
     Active Substance: UNSPECIFIED INGREDIENT
     Indication: PANCREATIC CARCINOMA
     Dosage: ?          OTHER FREQUENCY:5DAY/WEEK;OTHER ROUTE:EXTERNAL BEAM?
     Dates: start: 20171009, end: 20171115
  7. AMBIEN [Concomitant]
     Active Substance: ZOLPIDEM TARTRATE
  8. OXYCODONE [Concomitant]
     Active Substance: OXYCODONE
  9. ALBUTEROL. [Concomitant]
     Active Substance: ALBUTEROL
  10. MIRALAX [Concomitant]
     Active Substance: POLYETHYLENE GLYCOL 3350
  11. GEMCITABINE [Suspect]
     Active Substance: GEMCITABINE\GEMCITABINE HYDROCHLORIDE
     Indication: PANCREATIC CARCINOMA
     Dosage: ?          OTHER FREQUENCY:28DAYCYCLE;?
     Route: 042
     Dates: start: 20170802, end: 20170912
  12. NAB-PACLITAXEL [Suspect]
     Active Substance: PACLITAXEL
     Indication: PANCREATIC CARCINOMA
     Dosage: ?          OTHER FREQUENCY:28DAYCYCLE;?
     Route: 042
     Dates: start: 20170802, end: 20170912
  13. DULERA [Concomitant]
     Active Substance: FORMOTEROL FUMARATE DIHYDRATE\MOMETASONE FUROATE
  14. ATENOLOL. [Concomitant]
     Active Substance: ATENOLOL
  15. K-DUR [Concomitant]
     Active Substance: POTASSIUM CHLORIDE

REACTIONS (5)
  - Gastric ulcer [None]
  - Vomiting [None]
  - Abdominal pain [None]
  - Duodenal perforation [None]
  - Nausea [None]

NARRATIVE: CASE EVENT DATE: 20180208
